FAERS Safety Report 5762387-7 (Version None)
Quarter: 2008Q2

REPORT INFORMATION
  Report Type: 
  Country: None (occurrence: None)
  Receive Date: 20080603
  Receipt Date: 20080519
  Transmission Date: 20081010
  Serious: Yes (Life-Threatening)
  Sender: FDA-Public Use
  Company Number: 2008S1008614

PATIENT
  Age: 44 Year
  Sex: Female

DRUGS (2)
  1. CITALOPRAM HYDROBROMIDE [Suspect]
     Indication: ANXIETY
     Dosage: 40 MG; ; ORAL
     Route: 048
     Dates: start: 20060101, end: 20080503
  2. NORETHINDRONE ACETATE [Concomitant]

REACTIONS (2)
  - HYPOKALAEMIA [None]
  - VENTRICULAR FIBRILLATION [None]
